FAERS Safety Report 8716249 (Version 3)
Quarter: 2013Q4

REPORT INFORMATION
  Report Type: Spontaneous
  Country: US (occurrence: US)
  Receive Date: 20120810
  Receipt Date: 20131105
  Transmission Date: 20140711
  Serious: Yes (Hospitalization, Disabling)
  Sender: FDA-Public Use
  Company Number: US-009507513-1207USA013122

PATIENT
  Age: 59 Year
  Sex: Female

DRUGS (5)
  1. TEMODAR [Suspect]
     Indication: BRAIN NEOPLASM
     Dosage: 75 MG/M2, CONCOMITANTLY WITH RADIATION
  2. TEMODAR [Suspect]
     Dosage: 150 MG/M2, UNK
  3. KEPPRA [Concomitant]
  4. ATORVASTATIN [Concomitant]
  5. LOPRESSOR [Concomitant]

REACTIONS (2)
  - Nephrogenic diabetes insipidus [Recovering/Resolving]
  - Mental status changes [Not Recovered/Not Resolved]
